FAERS Safety Report 10413237 (Version 4)
Quarter: 2015Q1

REPORT INFORMATION
  Report Type: Report from Study
  Country: US (occurrence: US)
  Receive Date: 20140827
  Receipt Date: 20150224
  Transmission Date: 20150720
  Serious: Yes (Other)
  Sender: FDA-Public Use
  Company Number: US-SA-2014SA113283

PATIENT
  Age: 54 Year
  Sex: Male

DRUGS (1)
  1. AUBAGIO [Suspect]
     Active Substance: TERIFLUNOMIDE
     Indication: MULTIPLE SCLEROSIS
     Route: 048
     Dates: start: 20140904

REACTIONS (8)
  - Fatigue [Unknown]
  - Cerebrovascular accident [Unknown]
  - Somnolence [Unknown]
  - Influenza like illness [Unknown]
  - Fall [Unknown]
  - Hypokinesia [Unknown]
  - Vomiting [Unknown]
  - Multiple sclerosis relapse [Unknown]
